FAERS Safety Report 15578493 (Version 1)
Quarter: 2018Q4

REPORT INFORMATION
  Report Type: Other
  Country: RU (occurrence: RU)
  Receive Date: 20181102
  Receipt Date: 20181102
  Transmission Date: 20190205
  Serious: Yes (Other)
  Sender: FDA-Public Use
  Company Number: RU-LUPIN PHARMACEUTICALS INC.-2018-03704

PATIENT
  Age: 91 Year
  Sex: Female
  Weight: 70 kg

DRUGS (13)
  1. CEFAXONE [Suspect]
     Active Substance: CEFTRIAXONE
     Indication: BACTERAEMIA
  2. INSUMAN RAPID [Concomitant]
     Active Substance: INSULIN HUMAN
     Indication: DIABETES MELLITUS
     Dosage: UNK
     Route: 058
     Dates: start: 20130909, end: 20130920
  3. NOLICIN [Concomitant]
     Indication: BACTERAEMIA
  4. HELICID                            /00661201/ [Concomitant]
     Indication: GASTRITIS EROSIVE
     Dosage: UNK
     Route: 048
     Dates: start: 20130920
  5. INSULIN PORK [Concomitant]
     Active Substance: INSULIN PORK\INSULIN PURIFIED PORK
     Indication: DIABETES MELLITUS
     Dosage: UNK
     Route: 058
     Dates: start: 20130909
  6. NOLICIN [Concomitant]
     Indication: PYELONEPHRITIS CHRONIC
     Dosage: UNK
     Route: 048
     Dates: start: 20130909, end: 20130911
  7. TRIFAMOX IBL                       /06242301/ [Concomitant]
     Indication: BACTERAEMIA
  8. CEFAXONE [Suspect]
     Active Substance: CEFTRIAXONE
     Indication: RENAL CANCER
  9. HALOPERIDOL. [Concomitant]
     Active Substance: HALOPERIDOL
     Indication: ENCEPHALOPATHY
     Dosage: UNK
     Route: 048
     Dates: start: 20130919
  10. ACECARDOL [Concomitant]
     Active Substance: ASPIRIN
     Indication: CORONARY ARTERY DISEASE
     Dosage: UNK
     Route: 048
     Dates: start: 20130909, end: 20130920
  11. TRIFAMOX IBL                       /06242301/ [Concomitant]
     Indication: RENAL CANCER
     Dosage: UNK
     Route: 042
     Dates: start: 20130917, end: 20130920
  12. CEFAXONE [Suspect]
     Active Substance: CEFTRIAXONE
     Indication: PNEUMONIA
     Dosage: 2 GM, QD
     Route: 042
     Dates: start: 20130920
  13. RENIPRIL [Concomitant]
     Indication: ESSENTIAL HYPERTENSION
     Dosage: UNK
     Route: 048
     Dates: start: 20130909

REACTIONS (1)
  - Clostridium difficile colitis [Recovered/Resolved]

NARRATIVE: CASE EVENT DATE: 20130924
